FAERS Safety Report 9016303 (Version 1)
Quarter: 2013Q1

REPORT INFORMATION
  Report Type: Spontaneous
  Country: CA (occurrence: CA)
  Receive Date: 20130116
  Receipt Date: 20130116
  Transmission Date: 20140127
  Serious: Yes (Hospitalization)
  Sender: FDA-Public Use
  Company Number: PHHY2012CA123931

PATIENT
  Sex: Male
  Weight: 79.2 kg

DRUGS (1)
  1. NILOTINIB [Suspect]
     Indication: CHRONIC MYELOID LEUKAEMIA
     Dosage: 300 MG, BID
     Route: 048
     Dates: start: 20100616, end: 20121218

REACTIONS (5)
  - Angioimmunoblastic T-cell lymphoma [Not Recovered/Not Resolved]
  - Splenomegaly [Unknown]
  - Second primary malignancy [Not Recovered/Not Resolved]
  - Pleural effusion [Unknown]
  - Dyspnoea [Unknown]
